FAERS Safety Report 5676652-5 (Version None)
Quarter: 2008Q1

REPORT INFORMATION
  Report Type: 
  Country: None (occurrence: None)
  Receive Date: 20080324
  Receipt Date: 20080313
  Transmission Date: 20080703
  Serious: Yes (Other)
  Sender: FDA-Public Use
  Company Number: US-JNJFOC-20080303658

PATIENT
  Age: 74 Year
  Sex: Male

DRUGS (1)
  1. REMICADE [Suspect]
     Indication: DRUG USE FOR UNKNOWN INDICATION
     Dosage: START AND STOP DATE: 4-5 YEARS AGO
     Route: 042

REACTIONS (3)
  - ANEURYSM [None]
  - DRUG INEFFECTIVE [None]
  - NERVOUS SYSTEM DISORDER [None]
